FAERS Safety Report 18403076 (Version 1)
Quarter: 2020Q4

REPORT INFORMATION
  Report Type: Spontaneous
  Country: SE (occurrence: SE)
  Receive Date: 20201019
  Receipt Date: 20201019
  Transmission Date: 20210114
  Serious: Yes (Other)
  Sender: FDA-Public Use
  Company Number: SE-CELLTRION INC.-2020SE028985

PATIENT

DRUGS (1)
  1. INFLECTRA [Suspect]
     Active Substance: INFLIXIMAB-DYYB
     Indication: CROHN^S DISEASE
     Dosage: UNK; END DATE: 30-JUN-2020

REACTIONS (3)
  - Subcutaneous abscess [Recovering/Resolving]
  - Dermatitis allergic [Unknown]
  - Pain [Unknown]

NARRATIVE: CASE EVENT DATE: 2020
